FAERS Safety Report 5748718-2 (Version None)
Quarter: 2008Q2

REPORT INFORMATION
  Report Type: 
  Country: None (occurrence: None)
  Receive Date: 20080521
  Receipt Date: 20080513
  Transmission Date: 20081010
  Serious: Yes (Life-Threatening, Hospitalization, Other)
  Sender: FDA-Public Use
  Company Number: 19333

PATIENT
  Age: 14 Year
  Sex: Male

DRUGS (8)
  1. CYTARABINE [Suspect]
     Indication: B-CELL LYMPHOMA
     Dates: start: 19970101
  2. METHOTREXATE [Suspect]
     Indication: B-CELL LYMPHOMA
     Dates: start: 19970101
  3. VINCRISTINE [Suspect]
     Indication: B-CELL LYMPHOMA
     Dates: start: 19970101
  4. DOXORUBICIN HCL [Suspect]
     Indication: B-CELL LYMPHOMA
     Dates: start: 19970101
  5. CYCLOPHOSPHAMIDE [Suspect]
     Indication: B-CELL LYMPHOMA
     Dates: start: 19970101
  6. PREDNISOLONE [Suspect]
     Indication: B-CELL LYMPHOMA
     Dates: start: 19970101
  7. MESNA [Concomitant]
  8. ANTIHYPERTENSIVE [Concomitant]

REACTIONS (10)
  - BLADDER TELANGIECTASIA [None]
  - BLOOD CREATININE INCREASED [None]
  - HAEMATURIA [None]
  - HAEMORRHAGE [None]
  - KIDNEY SMALL [None]
  - NOCTURIA [None]
  - RENAL HYPERTROPHY [None]
  - SCAR [None]
  - THROMBOSIS [None]
  - URETERIC DILATATION [None]
